FAERS Safety Report 9096266 (Version 1)
Quarter: 2013Q1

REPORT INFORMATION
  Report Type: Spontaneous
  Country: US (occurrence: US)
  Receive Date: 20130207
  Receipt Date: 20130207
  Transmission Date: 20140127
  Serious: Yes (Hospitalization, Other)
  Sender: FDA-Public Use
  Company Number: US-SANOFI-AVENTIS-2013SA010043

PATIENT
  Age: 65 Year
  Sex: Male

DRUGS (9)
  1. PLAVIX [Suspect]
     Dates: start: 2007
  2. VASOTEC [Concomitant]
  3. COREG [Concomitant]
  4. LANOXIN [Concomitant]
  5. SYNTHROID [Concomitant]
  6. ZOCOR [Concomitant]
  7. ASPIRIN [Concomitant]
  8. LANTUS [Concomitant]
  9. NOVOLOG [Concomitant]

REACTIONS (4)
  - Atrial fibrillation [Recovered/Resolved]
  - Gangrene [Unknown]
  - Peripheral arterial occlusive disease [Unknown]
  - Therapeutic response unexpected [Unknown]
